FAERS Safety Report 7425352-X (Version None)
Quarter: 2011Q2

REPORT INFORMATION
  Report Type: 
  Country: None (occurrence: None)
  Receive Date: 20110420
  Receipt Date: 20101007
  Transmission Date: 20111010
  Serious: Yes (Hospitalization, Other)
  Sender: FDA-Public Use
  Company Number: US-BAYER-201017365NA

PATIENT
  Age: 43 Year
  Sex: Female
  Weight: 59 kg

DRUGS (4)
  1. SINGULAIR [Concomitant]
     Dosage: 10 MG, UNK
     Route: 048
  2. YAZ [Suspect]
     Indication: CONTRACEPTION
     Route: 048
     Dates: start: 20070101, end: 20090301
  3. YASMIN [Suspect]
     Indication: CONTRACEPTION
     Route: 048
     Dates: start: 20070101, end: 20090301
  4. ADVAIR HFA [Concomitant]
     Dosage: UNK
     Route: 055

REACTIONS (7)
  - GALLBLADDER DISORDER [None]
  - ABDOMINAL PAIN [None]
  - VOMITING [None]
  - CHEST PAIN [None]
  - BILIARY DYSKINESIA [None]
  - CHOLECYSTITIS CHRONIC [None]
  - NAUSEA [None]
